FAERS Safety Report 7472733-4 (Version None)
Quarter: 2011Q2

REPORT INFORMATION
  Report Type: 
  Country: None (occurrence: None)
  Receive Date: 20110511
  Receipt Date: 20110503
  Transmission Date: 20111010
  Serious: Yes (Death)
  Sender: FDA-Public Use
  Company Number: FR-PFIZER INC-FR-WYE-H13650510

PATIENT
  Age: 59 Year
  Sex: Female

DRUGS (10)
  1. VINORELBINE [Suspect]
     Dosage: GIVEN MONTHLY, DOSE NOT PROVIDED
     Route: 042
     Dates: start: 20091221, end: 20091221
  2. GEMZAR [Concomitant]
     Dosage: UNK
     Route: 065
     Dates: start: 20091101
  3. CORDARONE [Suspect]
     Dosage: 200 MG, 1X/DAY
     Route: 048
  4. FLECAINIDE ACETATE [Suspect]
     Dosage: 200 MG, 1X/DAY
     Route: 048
  5. ATORVASTATIN CALCIUM [Suspect]
     Dosage: 20 MG, 1X/DAY
     Route: 048
  6. LASIX [Suspect]
     Dosage: 40 MG, 1X/DAY
     Route: 048
  7. VINORELBINE [Suspect]
     Indication: ADENOCARCINOMA
     Dosage: GIVEN MONTHLY, DOSE NOT PROVIDED
     Route: 042
     Dates: start: 20091124, end: 20091124
  8. LEVOTHYROXINE SODIUM [Suspect]
     Indication: HYPOTHYROIDISM
     Dosage: 25 UG, 1X/DAY
     Route: 048
  9. TRAMADOL HCL [Suspect]
     Dosage: 50 MG, 2X/DAY
     Route: 048
     Dates: start: 20100111, end: 20100116
  10. ATARAX [Suspect]
     Dosage: 25 MG, 1X/DAY
     Route: 048
     Dates: start: 20100111, end: 20100111

REACTIONS (1)
  - INTESTINAL OBSTRUCTION [None]
